FAERS Safety Report 4418112-5 (Version None)
Quarter: 2004Q3

REPORT INFORMATION
  Report Type: 
  Country: None (occurrence: None)
  Receive Date: 20040805
  Receipt Date: 20040805
  Transmission Date: 20050211
  Serious: Yes (Hospitalization)
  Sender: FDA-Public Use
  Company Number: None

PATIENT
  Age: 62 Year
  Sex: Female

DRUGS (7)
  1. IRESSA [Suspect]
     Indication: LUNG NEOPLASM MALIGNANT
     Dosage: 250 MG QD PO
     Route: 048
     Dates: start: 20040803
  2. FASLODEX [Suspect]
     Indication: LUNG NEOPLASM MALIGNANT
     Dosage: 250 MG IM Q MONTH
     Route: 030
     Dates: start: 20040803
  3. THEOPHYLLINE [Concomitant]
  4. SYNTHROID [Concomitant]
  5. ESTRAZOLON [Concomitant]
  6. LORAZEPAM [Concomitant]
  7. OXYCONTIN [Concomitant]

REACTIONS (7)
  - AXILLARY PAIN [None]
  - DISEASE RECURRENCE [None]
  - ERYTHEMA [None]
  - SEROMA [None]
  - SKIN INDURATION [None]
  - SOFT TISSUE DISORDER [None]
  - SWELLING [None]
